FAERS Safety Report 4657247-9 (Version None)
Quarter: 2005Q2

REPORT INFORMATION
  Report Type: 
  Country: None (occurrence: None)
  Receive Date: 20050506
  Receipt Date: 20050421
  Transmission Date: 20051028
  Serious: Yes (Hospitalization, Other)
  Sender: FDA-Public Use
  Company Number: 2005BI008033

PATIENT
  Age: 49 Year
  Sex: Female
  Weight: 75.7507 kg

DRUGS (4)
  1. AVONEX [Suspect]
     Indication: MULTIPLE SCLEROSIS
     Dosage: 30 UG; QW; IM
     Route: 030
     Dates: start: 20000101, end: 20020101
  2. NATALIZUMAB [Suspect]
     Indication: MULTIPLE SCLEROSIS
     Dosage: 300 MG; QM; IV
     Route: 042
     Dates: start: 20041201, end: 20050201
  3. LANTUS [Concomitant]
  4. EYE MEDICATION [Concomitant]

REACTIONS (6)
  - ABASIA [None]
  - ASTHENIA [None]
  - FALL [None]
  - MALAISE [None]
  - MEMORY IMPAIRMENT [None]
  - PARATHYROID DISORDER [None]
